FAERS Safety Report 8018511-9 (Version None)
Quarter: 2012Q1

REPORT INFORMATION
  Report Type: 
  Country: None (occurrence: None)
  Receive Date: 20120103
  Receipt Date: 20111227
  Transmission Date: 20120608
  Serious: Yes (Other)
  Sender: FDA-Public Use
  Company Number: US-PFIZER INC-2011282094

PATIENT
  Sex: Female
  Weight: 70.295 kg

DRUGS (15)
  1. QUINAPRIL [Concomitant]
     Dosage: 20 MG, 1X/DAY
     Route: 048
  2. VALIUM [Concomitant]
     Indication: TEMPOROMANDIBULAR JOINT SYNDROME
  3. DIAZEPAM [Concomitant]
     Indication: MUSCLE SPASMS
     Dosage: 5 MG, 1X/DAY
  4. PROCARDIA [Concomitant]
     Dosage: 90 MG, DAILY
     Route: 048
     Dates: start: 20111001
  5. CHANTIX [Suspect]
     Indication: SMOKING CESSATION THERAPY
     Dosage: UNK
     Route: 048
     Dates: start: 20080226
  6. PROCARDIA [Concomitant]
     Dosage: 60 MG, 1X/DAY
     Route: 048
  7. QUINAPRIL [Concomitant]
     Indication: HYPERTENSION
     Dosage: 30 MG, 1X/DAY
     Route: 048
  8. VALIUM [Concomitant]
     Indication: VERTIGO
  9. VALIUM [Concomitant]
     Indication: ANXIETY
  10. CHANTIX [Suspect]
     Dosage: UNK
     Route: 048
  11. PROCARDIA [Concomitant]
     Indication: HYPERTENSION
     Dosage: 30 MG, 1X/DAY
     Route: 048
  12. VALIUM [Concomitant]
     Indication: MUSCLE SPASMS
  13. QUINAPRIL [Concomitant]
     Dosage: 40 MG, DAILY
     Route: 048
     Dates: start: 20111001
  14. PRILOSEC [Concomitant]
     Indication: BARRETT'S OESOPHAGUS
     Dosage: 20 MG, 2X/DAY
     Route: 048
  15. VALIUM [Concomitant]
     Indication: MULTIPLE SCLEROSIS
     Dosage: 5 MG, AS NEEDED TWO TO THREE TIMES A DAY
     Route: 048

REACTIONS (4)
  - ABNORMAL DREAMS [None]
  - SLEEP-RELATED EATING DISORDER [None]
  - SOMNAMBULISM [None]
  - CONFUSIONAL STATE [None]
